FAERS Safety Report 9351401 (Version 1)
Quarter: 2013Q2

REPORT INFORMATION
  Report Type: Spontaneous
  Country: US (occurrence: US)
  Receive Date: 20130617
  Receipt Date: 20130617
  Transmission Date: 20140414
  Serious: No
  Sender: FDA-Public Use
  Company Number: US-UPSHER-SMITH LABORATORIES, INC.-13001739

PATIENT
  Sex: Female

DRUGS (5)
  1. AMANTADINE HYDROCHLORIDE [Suspect]
     Indication: PARKINSON^S DISEASE
     Dosage: 100 MG, BID
     Dates: start: 2011, end: 2011
  2. AMANTADINE HYDROCHLORIDE [Suspect]
     Indication: PARKINSON^S DISEASE
     Dosage: 100 MG, TID
     Route: 048
     Dates: start: 2011
  3. AMANTADINE HYDROCHLORIDE [Suspect]
     Dosage: 100 MG, BID
     Route: 048
     Dates: start: 2010, end: 2011
  4. SINEMET [Concomitant]
     Dosage: UNK
  5. MIRAPEX [Concomitant]
     Dosage: UNK

REACTIONS (1)
  - Alopecia [Not Recovered/Not Resolved]
